FAERS Safety Report 8761674 (Version 2)
Quarter: 2012Q4

REPORT INFORMATION
  Report Type: Spontaneous
  Country: US (occurrence: None)
  Receive Date: 20120822
  Receipt Date: 20120919
  Transmission Date: 20130627
  Serious: Yes (Hospitalization)
  Sender: FDA-Public Use
  Company Number: E2B_00000339

PATIENT
  Age: 81 Year
  Sex: Female
  Weight: 67.13 kg

DRUGS (2)
  1. CEFUROXIME AXETIL TABLETS USP 250 MG (CEFUROXIME AXETIL) INFECTION [Suspect]
     Indication: BRONCHITIS
     Dosage: (250 mg, 2 in 1 d)
     Route: 048
     Dates: start: 20120716, end: 20120716
  2. TIOTROPIUM BROMIDE [Concomitant]

REACTIONS (3)
  - Throat irritation [None]
  - Dyspnoea [None]
  - Swelling [None]
